FAERS Safety Report 5253037-7 (Version None)
Quarter: 2007Q1

REPORT INFORMATION
  Report Type: 
  Country: None (occurrence: None)
  Receive Date: 20070227
  Receipt Date: 20070213
  Transmission Date: 20070707
  Serious: Yes (Hospitalization)
  Sender: FDA-Public Use
  Company Number: GXKR2007GB01647

PATIENT
  Age: 21 Year
  Sex: Female
  Weight: 87.5 kg

DRUGS (5)
  1. DOXYCYCLINE [Suspect]
     Indication: ACNE
     Dosage: 100 MG, UNK, ORAL
     Route: 048
     Dates: start: 20060316, end: 20070107
  2. ADAPALENE (ADAPALENE) [Concomitant]
  3. CEPHRADINE [Concomitant]
  4. CIPROFLOXACIN [Concomitant]
  5. PERINDOPRIL ERBUMINE [Concomitant]

REACTIONS (1)
  - BENIGN INTRACRANIAL HYPERTENSION [None]
